FAERS Safety Report 13131728 (Version 2)
Quarter: 2017Q1

REPORT INFORMATION
  Report Type: Report from Study
  Country: US (occurrence: US)
  Receive Date: 20170119
  Receipt Date: 20170222
  Transmission Date: 20170428
  Serious: Yes (Death, Life-Threatening, Hospitalization, Other)
  Sender: FDA-Public Use
  Company Number: US-BRISTOL-MYERS SQUIBB COMPANY-BMS-2017-002993

PATIENT
  Age: 84 Year
  Sex: Male
  Weight: 72.3 kg

DRUGS (3)
  1. DASATINIB [Suspect]
     Active Substance: DASATINIB
     Indication: ACUTE LYMPHOCYTIC LEUKAEMIA
     Dosage: 10360 MG, UNK
     Route: 048
     Dates: start: 20161021, end: 20161229
  2. METHOTREXATE SODIUM. [Suspect]
     Active Substance: METHOTREXATE SODIUM
     Indication: ACUTE LYMPHOCYTIC LEUKAEMIA
     Dosage: 24 MG, UNK
     Route: 050
     Dates: start: 20161019
  3. PREDNISONE. [Suspect]
     Active Substance: PREDNISONE
     Indication: ACUTE LYMPHOCYTIC LEUKAEMIA
     Dosage: 3090 MG, UNK
     Route: 048
     Dates: start: 20161021

REACTIONS (11)
  - Lung infection [Not Recovered/Not Resolved]
  - Muscular weakness [Unknown]
  - Acute respiratory distress syndrome [Fatal]
  - Hypoxia [Unknown]
  - Vomiting [Recovered/Resolved]
  - Pyrexia [Recovered/Resolved]
  - Urinary tract infection [Not Recovered/Not Resolved]
  - Influenza [Unknown]
  - Embolism [Not Recovered/Not Resolved]
  - Sepsis [Not Recovered/Not Resolved]
  - Nausea [Recovered/Resolved]

NARRATIVE: CASE EVENT DATE: 20161217
